FAERS Safety Report 13410576 (Version 2)
Quarter: 2017Q4

REPORT INFORMATION
  Report Type: Spontaneous
  Country: US (occurrence: US)
  Receive Date: 20170406
  Receipt Date: 20171123
  Transmission Date: 20180320
  Serious: No
  Sender: FDA-Public Use
  Company Number: US-JNJFOC-20170300271

PATIENT
  Sex: Male

DRUGS (15)
  1. RISPERDAL [Suspect]
     Active Substance: RISPERIDONE
     Indication: AGGRESSION
     Dosage: 0.25 MG AND 1 MG
     Route: 048
     Dates: start: 20030417, end: 20051111
  2. RISPERDAL [Suspect]
     Active Substance: RISPERIDONE
     Indication: ABNORMAL BEHAVIOUR
     Dosage: 0.25 MG AND 1 MG
     Route: 048
     Dates: start: 20000817
  3. RISPERDAL [Suspect]
     Active Substance: RISPERIDONE
     Indication: BIPOLAR DISORDER
     Dosage: 0.25 MG AND 1 MG
     Route: 048
     Dates: start: 20000817
  4. RISPERDAL [Suspect]
     Active Substance: RISPERIDONE
     Indication: ABNORMAL BEHAVIOUR
     Dosage: 0.25 MG AND 1 MG
     Route: 048
     Dates: start: 20060523, end: 20060608
  5. RISPERDAL [Suspect]
     Active Substance: RISPERIDONE
     Indication: AGGRESSION
     Dosage: 0.25 MG AND 1 MG
     Route: 048
     Dates: start: 20070612, end: 200808
  6. RISPERDAL [Suspect]
     Active Substance: RISPERIDONE
     Indication: AGGRESSION
     Dosage: 0.25 MG AND 1 MG
     Route: 048
     Dates: start: 20000817
  7. RISPERDAL [Suspect]
     Active Substance: RISPERIDONE
     Indication: ABNORMAL BEHAVIOUR
     Dosage: 0.25 MG AND 1 MG
     Route: 048
     Dates: end: 200603
  8. RISPERDAL [Suspect]
     Active Substance: RISPERIDONE
     Indication: BIPOLAR DISORDER
     Dosage: 0.25 MG AND 1 MG
     Route: 048
     Dates: start: 20030417, end: 20051111
  9. RISPERDAL [Suspect]
     Active Substance: RISPERIDONE
     Indication: BIPOLAR DISORDER
     Dosage: 0.25 MG AND 1 MG
     Route: 048
     Dates: start: 20070612, end: 200808
  10. RISPERDAL [Suspect]
     Active Substance: RISPERIDONE
     Indication: BIPOLAR DISORDER
     Dosage: 0.25 MG AND 1 MG
     Route: 048
     Dates: end: 200603
  11. RISPERDAL [Suspect]
     Active Substance: RISPERIDONE
     Indication: AGGRESSION
     Dosage: 0.25 MG AND 1 MG
     Route: 048
     Dates: start: 20060523, end: 20060608
  12. RISPERDAL [Suspect]
     Active Substance: RISPERIDONE
     Indication: ABNORMAL BEHAVIOUR
     Dosage: 0.25 MG AND 1 MG
     Route: 048
     Dates: start: 20030417, end: 20051111
  13. RISPERDAL [Suspect]
     Active Substance: RISPERIDONE
     Indication: AGGRESSION
     Dosage: 0.25 MG AND 1 MG
     Route: 048
     Dates: end: 200603
  14. RISPERDAL [Suspect]
     Active Substance: RISPERIDONE
     Indication: ABNORMAL BEHAVIOUR
     Dosage: 0.25 MG AND 1 MG
     Route: 048
     Dates: start: 20070612, end: 200808
  15. RISPERDAL [Suspect]
     Active Substance: RISPERIDONE
     Indication: BIPOLAR DISORDER
     Dosage: 0.25 MG AND 1 MG
     Route: 048
     Dates: start: 20060523, end: 20060608

REACTIONS (2)
  - Gynaecomastia [Unknown]
  - Emotional disorder [Unknown]
